FAERS Safety Report 4366331-9 (Version None)
Quarter: 2004Q2

REPORT INFORMATION
  Report Type: 
  Country: None (occurrence: None)
  Receive Date: 20040527
  Receipt Date: 20030908
  Transmission Date: 20050107
  Serious: No
  Sender: FDA-Public Use
  Company Number: US-GLAXOSMITHKLINE-A0425053A

PATIENT
  Age: 40 Year
  Sex: Male

DRUGS (2)
  1. ALBUTEROL [Suspect]
     Indication: BRONCHOSPASM
     Route: 055
     Dates: start: 20030801
  2. ATROVENT [Concomitant]

REACTIONS (1)
  - ASTHMA [None]
